FAERS Safety Report 7426734-2 (Version None)
Quarter: 2011Q2

REPORT INFORMATION
  Report Type: 
  Country: None (occurrence: None)
  Receive Date: 20110420
  Receipt Date: 20110411
  Transmission Date: 20111010
  Serious: Yes (Other)
  Sender: FDA-Public Use
  Company Number: FR-ELI_LILLY_AND_COMPANY-FR201104002749

PATIENT
  Sex: Male

DRUGS (2)
  1. GEMZAR [Suspect]
     Indication: BLADDER CANCER
     Dosage: UNK, UNKNOWN
     Route: 042
     Dates: start: 20110203, end: 20110210
  2. CISPLATIN [Concomitant]
     Indication: BLADDER CANCER
     Dosage: UNK
     Route: 042
     Dates: start: 20110204

REACTIONS (2)
  - THROMBOCYTOSIS [None]
  - NEUTROPENIA [None]
